FAERS Safety Report 21408422 (Version 1)
Quarter: 2022Q4

REPORT INFORMATION
  Report Type: Spontaneous
  Country: CA (occurrence: CA)
  Receive Date: 20221004
  Receipt Date: 20221004
  Transmission Date: 20230112
  Serious: Yes (Other)
  Sender: FDA-Public Use
  Company Number: CA-BRISTOL-MYERS SQUIBB COMPANY-2022-115372

PATIENT
  Age: 70 Year
  Sex: Male

DRUGS (5)
  1. NIVOLUMAB [Suspect]
     Active Substance: NIVOLUMAB
     Indication: Product used for unknown indication
     Route: 065
  2. ZIRABEV [Suspect]
     Active Substance: BEVACIZUMAB-BVZR
     Indication: Product used for unknown indication
     Route: 065
     Dates: start: 202209
  3. REGORAFENIB [Suspect]
     Active Substance: REGORAFENIB
     Indication: Product used for unknown indication
     Route: 065
  4. LONSURF [Suspect]
     Active Substance: TIPIRACIL HYDROCHLORIDE\TRIFLURIDINE
     Indication: Product used for unknown indication
     Route: 065
     Dates: start: 20211211
  5. CAPECITABINE [Suspect]
     Active Substance: CAPECITABINE
     Indication: Product used for unknown indication
     Route: 065
     Dates: start: 202209

REACTIONS (5)
  - Fatigue [Unknown]
  - Malignant neoplasm progression [Unknown]
  - Thrombosis [Unknown]
  - Gastrointestinal haemorrhage [Unknown]
  - Deep vein thrombosis [Unknown]
